FAERS Safety Report 6396219-3 (Version None)
Quarter: 2009Q4

REPORT INFORMATION
  Report Type: 
  Country: None (occurrence: None)
  Receive Date: 20091011
  Receipt Date: 20091002
  Transmission Date: 20100525
  Serious: Yes (Hospitalization, Other)
  Sender: FDA-Public Use
  Company Number: PHHY2009CA13879

PATIENT
  Sex: Male

DRUGS (1)
  1. SANDOSTATIN LAR [Suspect]
     Indication: ACROMEGALY
     Dosage: 40 MG, QMO
     Route: 030
     Dates: start: 20080313

REACTIONS (2)
  - BLOOD PRESSURE INCREASED [None]
  - MITRAL VALVE REPAIR [None]
